FAERS Safety Report 20098543 (Version 1)
Quarter: 2021Q4

REPORT INFORMATION
  Report Type: Spontaneous
  Country: US (occurrence: US)
  Receive Date: 20211122
  Receipt Date: 20211122
  Transmission Date: 20220303
  Serious: No
  Sender: FDA-Public Use
  Company Number: US-BRACCO-2020US04376

PATIENT
  Age: 64 Year
  Sex: Male

DRUGS (8)
  1. LUMASON [Suspect]
     Active Substance: SULFUR HEXAFLUORIDE
     Indication: Diagnostic procedure
     Dosage: UNK UNK, SINGLE
     Route: 042
     Dates: start: 20201021, end: 20201021
  2. LUMASON [Suspect]
     Active Substance: SULFUR HEXAFLUORIDE
     Indication: Diagnostic procedure
     Dosage: UNK UNK, SINGLE
     Route: 042
     Dates: start: 20201021, end: 20201021
  3. LUMASON [Suspect]
     Active Substance: SULFUR HEXAFLUORIDE
     Indication: Diagnostic procedure
     Dosage: UNK UNK, SINGLE
     Route: 042
     Dates: start: 20201021, end: 20201021
  4. LUMASON [Suspect]
     Active Substance: SULFUR HEXAFLUORIDE
     Indication: Diagnostic procedure
     Dosage: UNK UNK, SINGLE
     Route: 042
     Dates: start: 20201021, end: 20201021
  5. LUMASON [Suspect]
     Active Substance: SULFUR HEXAFLUORIDE
     Indication: Diagnostic procedure
     Dosage: UNK UNK, SINGLE
     Route: 042
     Dates: start: 20201021, end: 20201021
  6. LUMASON [Suspect]
     Active Substance: SULFUR HEXAFLUORIDE
     Indication: Diagnostic procedure
     Dosage: UNK UNK, SINGLE
     Route: 042
     Dates: start: 20201021, end: 20201021
  7. SODIUM CHLORIDE [Concomitant]
     Active Substance: SODIUM CHLORIDE
     Dosage: 0.9% NS, 5 ML MIXED TO VIAL
     Route: 042
     Dates: start: 20201021, end: 20201021
  8. SODIUM CHLORIDE [Concomitant]
     Active Substance: SODIUM CHLORIDE
     Dosage: IV SALINE FLUSH
     Route: 042
     Dates: start: 20201021, end: 20201021

REACTIONS (2)
  - Therapeutic product effect decreased [Unknown]
  - Product reconstitution quality issue [Unknown]

NARRATIVE: CASE EVENT DATE: 20201021
